FAERS Safety Report 18107141 (Version 1)
Quarter: 2020Q3

REPORT INFORMATION
  Report Type: Spontaneous
  Country: US (occurrence: US)
  Receive Date: 20200804
  Receipt Date: 20200804
  Transmission Date: 20201103
  Serious: No
  Sender: FDA-Public Use
  Company Number: US-MYLANLABS-2020M1068242

PATIENT
  Sex: Female
  Weight: 65 kg

DRUGS (2)
  1. CLONIDINE TRANSDERMAL SYSTEM [Suspect]
     Active Substance: CLONIDINE
     Dosage: UNK
     Route: 062
  2. CLONIDINE TRANSDERMAL SYSTEM [Suspect]
     Active Substance: CLONIDINE
     Indication: BLOOD PRESSURE INADEQUATELY CONTROLLED
     Dosage: 0.1 MILLIGRAM, QD
     Route: 062

REACTIONS (2)
  - Off label use [Not Recovered/Not Resolved]
  - Product quality issue [Unknown]
